FAERS Safety Report 8846757 (Version 2)
Quarter: 2012Q4

REPORT INFORMATION
  Report Type: 
  Country: US (occurrence: US)
  Receive Date: 20121018
  Receipt Date: 20121107
  Transmission Date: 20130627
  Serious: No
  Sender: FDA-Public Use
  Company Number: US-PFIZER INC-2012254985

PATIENT
  Age: 56 Year
  Sex: Female
  Weight: 76 kg

DRUGS (1)
  1. ESTRING [Suspect]
     Indication: VAGINAL DRYNESS
     Dosage: 2 mg, every 3 months
     Route: 067
     Dates: start: 20121010

REACTIONS (2)
  - Diarrhoea [Unknown]
  - Vomiting [Unknown]
